FAERS Safety Report 6637093-7 (Version None)
Quarter: 2010Q1

REPORT INFORMATION
  Report Type: 
  Country: None (occurrence: None)
  Receive Date: 20100316
  Receipt Date: 20100308
  Transmission Date: 20100710
  Serious: Yes (Other)
  Sender: FDA-Public Use
  Company Number: CA-B.I. PHARMACEUTICALS,INC./RIDGEFIELD-2010-CN-00155CN

PATIENT
  Age: 54 Year
  Sex: Male

DRUGS (12)
  1. VIRAMUNE [Suspect]
     Route: 065
  2. CRIXIVAN [Suspect]
     Route: 065
  3. FUZEON [Suspect]
     Route: 058
  4. KALETRA [Suspect]
     Route: 065
  5. LAMIVUDINE [Suspect]
     Route: 065
  6. REYATAZ [Suspect]
     Route: 065
  7. SAQUINAVIR [Suspect]
     Route: 065
  8. VIDEX EC [Suspect]
     Route: 065
  9. VIREAD [Suspect]
     Route: 065
  10. ZERIT [Suspect]
     Route: 065
  11. ZIAGEN [Suspect]
     Route: 065
  12. ZIDOVUDINE [Suspect]
     Route: 065

REACTIONS (7)
  - BLOOD LACTIC ACID INCREASED [None]
  - DIPLOPIA [None]
  - DYSPHAGIA [None]
  - EYELID PTOSIS [None]
  - LIPODYSTROPHY ACQUIRED [None]
  - MITOCHONDRIAL TOXICITY [None]
  - PROGRESSIVE EXTERNAL OPHTHALMOPLEGIA [None]
